FAERS Safety Report 4606239-4 (Version None)
Quarter: 2005Q1

REPORT INFORMATION
  Report Type: 
  Country: None (occurrence: None)
  Receive Date: 20050116
  Receipt Date: 20041022
  Transmission Date: 20050727
  Serious: Yes (Other)
  Sender: FDA-Public Use
  Company Number: HQWYE061526OCT04

PATIENT
  Age: 40 Year
  Sex: Male

DRUGS (3)
  1. EFFEXOR [Suspect]
     Indication: ANXIETY
     Dosage: 225 MG 1X PER 1 DAY, ORAL
     Route: 048
     Dates: start: 20040901, end: 20041021
  2. EFFEXOR [Suspect]
     Indication: DEPRESSION
     Dosage: 225 MG 1X PER 1 DAY, ORAL
     Route: 048
     Dates: start: 20040901, end: 20041021
  3. AMBIEN [Concomitant]

REACTIONS (2)
  - CONTUSION [None]
  - THROMBOCYTOPENIA [None]
